FAERS Safety Report 7435131-5 (Version None)
Quarter: 2011Q2

REPORT INFORMATION
  Report Type: 
  Country: None (occurrence: None)
  Receive Date: 20110425
  Receipt Date: 20110413
  Transmission Date: 20111010
  Serious: Yes (Hospitalization, Other)
  Sender: FDA-Public Use
  Company Number: PHHY2010MX47812

PATIENT
  Sex: Female

DRUGS (4)
  1. TRILEPTAL [Suspect]
     Indication: EPILEPSY
     Dosage: 2 DF, QD
     Route: 048
     Dates: start: 20100105
  2. TRILEPTAL [Suspect]
     Dosage: 5 DF, QD
     Route: 048
     Dates: start: 20110317
  3. PHENYTOIN SODIUM CAP [Concomitant]
     Dosage: 1 DF, QD
     Route: 048
     Dates: start: 20100707
  4. TRILEPTAL [Suspect]
     Dosage: 3 DF, QD
     Route: 048
     Dates: start: 20100707

REACTIONS (2)
  - CONVULSION [None]
  - PETIT MAL EPILEPSY [None]
